FAERS Safety Report 8244442-5 (Version None)
Quarter: 2012Q1

REPORT INFORMATION
  Report Type: 
  Country: None (occurrence: None)
  Receive Date: 20120329
  Receipt Date: 20120326
  Transmission Date: 20120608
  Serious: Yes (Hospitalization, Other)
  Sender: FDA-Public Use
  Company Number: FR-PFIZER INC-2012060412

PATIENT
  Age: 6 Year
  Sex: Male
  Weight: 28 kg

DRUGS (1)
  1. PEDIATRIC ADVIL [Suspect]
     Indication: PYREXIA
     Dosage: 210 MG, SINGLE
     Route: 048
     Dates: start: 20120129, end: 20120129

REACTIONS (5)
  - DIARRHOEA HAEMORRHAGIC [None]
  - MALLORY-WEISS SYNDROME [None]
  - SALMONELLOSIS [None]
  - GASTRITIS [None]
  - HAEMATEMESIS [None]
